FAERS Safety Report 9759519 (Version 2)
Quarter: 2014Q1

REPORT INFORMATION
  Report Type: Spontaneous
  Country: TR (occurrence: TR)
  Receive Date: 20131216
  Receipt Date: 20140106
  Transmission Date: 20141002
  Serious: Yes (Hospitalization)
  Sender: FDA-Public Use
  Company Number: TR-BAYER-2013-149085

PATIENT
  Age: 59 Year
  Sex: Male
  Weight: 102.4 kg

DRUGS (4)
  1. CORASPIN [Suspect]
     Indication: CORONARY ARTERY DISEASE
     Dosage: 100 MG, QD
  2. COUMADIN [Suspect]
     Dosage: 5 MG, UNK
  3. DILATREND [Concomitant]
     Indication: ATRIAL FIBRILLATION
     Dosage: 25 MG, BID
  4. SPIRONOLACTONE [Concomitant]
     Indication: CARDIAC FAILURE

REACTIONS (2)
  - Cardiac pacemaker insertion [None]
  - Dyspnoea exertional [None]
